FAERS Safety Report 11067360 (Version 1)
Quarter: 2015Q2

REPORT INFORMATION
  Report Type: Report from Study
  Country: US (occurrence: US)
  Receive Date: 20150426
  Receipt Date: 20150426
  Transmission Date: 20150821
  Serious: Yes (Hospitalization, Disabling, Other)
  Sender: FDA-Public Use
  Company Number: US-BRISTOL-MYERS SQUIBB COMPANY-15703101

PATIENT
  Age: 55 Year
  Sex: Male
  Weight: 91.38 kg

DRUGS (7)
  1. TYLENOL [Concomitant]
     Active Substance: ACETAMINOPHEN
     Indication: PAIN
     Dosage: 2 TABS
     Route: 048
  2. HEPARIN [Concomitant]
     Active Substance: HEPARIN SODIUM
     Dosage: 1DF=5000 UNITS
     Route: 058
     Dates: start: 20110426
  3. DILAUDID [Concomitant]
     Active Substance: HYDROMORPHONE HYDROCHLORIDE
     Dosage: 1 MG, UNK
     Route: 042
     Dates: start: 20110426
  4. ZOFRAN [Concomitant]
     Active Substance: ONDANSETRON HYDROCHLORIDE
     Dosage: 4 G, INTERMITTENT
     Route: 042
  5. IPILIMUMAB [Suspect]
     Active Substance: IPILIMUMAB
     Indication: PROSTATE CANCER
     Dosage: UNK
     Route: 042
     Dates: start: 20110210
  6. RESTORIL [Concomitant]
     Active Substance: TEMAZEPAM
     Indication: INSOMNIA
     Dosage: 15 MG, QD
     Route: 048
     Dates: start: 20110426
  7. PREDNISONE. [Concomitant]
     Active Substance: PREDNISONE
     Dosage: 20 MG, QD
     Route: 048
     Dates: start: 20110426

REACTIONS (4)
  - Decreased appetite [Recovered/Resolved]
  - Pathological fracture [Recovered/Resolved with Sequelae]
  - Fatigue [Recovered/Resolved]
  - Back pain [Recovered/Resolved with Sequelae]

NARRATIVE: CASE EVENT DATE: 20110425
